FAERS Safety Report 12913128 (Version 2)
Quarter: 2016Q4

REPORT INFORMATION
  Report Type: Spontaneous
  Country: CO (occurrence: CO)
  Receive Date: 20161104
  Receipt Date: 20161227
  Transmission Date: 20170207
  Serious: Yes (Other)
  Sender: FDA-Public Use
  Company Number: CO-NOVOPROD-516366

PATIENT
  Age: 82 Year
  Sex: Female

DRUGS (2)
  1. HUMAN INSULIN [Suspect]
     Active Substance: INSULIN HUMAN
     Indication: TYPE 2 DIABETES MELLITUS
     Dosage: UNK
     Route: 065
  2. HUMAN INSULIN [Suspect]
     Active Substance: INSULIN HUMAN
     Dosage: UNK
     Route: 065

REACTIONS (2)
  - Fall [Unknown]
  - Rib fracture [Unknown]
